FAERS Safety Report 17392621 (Version 1)
Quarter: 2020Q1

REPORT INFORMATION
  Report Type: Spontaneous
  Country: US (occurrence: US)
  Receive Date: 20200207
  Receipt Date: 20200207
  Transmission Date: 20200409
  Serious: No
  Sender: FDA-Public Use
  Company Number: US-HIKMA PHARMACEUTICALS USA INC.-US-H14001-20-00035

PATIENT
  Sex: Male

DRUGS (2)
  1. MEPERIDINE [Suspect]
     Active Substance: MEPERIDINE
     Indication: BACK PAIN
     Route: 048
  2. MEPERIDINE [Suspect]
     Active Substance: MEPERIDINE
     Indication: BACK PAIN
     Route: 065

REACTIONS (3)
  - Toxicity to various agents [Recovered/Resolved]
  - Sedation [Recovered/Resolved]
  - Incorrect product dosage form administered [Recovered/Resolved]
